FAERS Safety Report 5773380-2 (Version None)
Quarter: 2008Q2

REPORT INFORMATION
  Report Type: 
  Country: None (occurrence: None)
  Receive Date: 20080616
  Receipt Date: 20080516
  Transmission Date: 20081010
  Serious: No
  Sender: FDA-Public Use
  Company Number: US-BAYER-200819290NA

PATIENT
  Age: 76 Year
  Sex: Female

DRUGS (3)
  1. LEUKINE [Suspect]
     Indication: MALIGNANT MELANOMA
     Dates: start: 20020528
  2. LEUKINE [Suspect]
     Indication: MALIGNANT MELANOMA
     Dates: end: 20080101
  3. LEUKINE [Suspect]
     Indication: MALIGNANT MELANOMA
     Route: 058
     Dates: start: 20080201, end: 20080303

REACTIONS (3)
  - BLEPHARITIS [None]
  - OCULAR HYPERAEMIA [None]
  - TOOTHACHE [None]
